FAERS Safety Report 6767520-6 (Version None)
Quarter: 2010Q2

REPORT INFORMATION
  Report Type: 
  Country: None (occurrence: None)
  Receive Date: 20100614
  Receipt Date: 20100605
  Transmission Date: 20101027
  Serious: Yes (Death)
  Sender: FDA-Public Use
  Company Number: JP-BRISTOL-MYERS SQUIBB COMPANY-15007131

PATIENT
  Age: 24 Year
  Sex: Male
  Weight: 51 kg

DRUGS (1)
  1. SPRYCEL [Suspect]
     Indication: CHRONIC MYELOID LEUKAEMIA
     Dosage: 27OCT09 (100MG-100MG-120MG) MODIFIED DASATINIB THERAPY 27OCT09-11NOV09
     Route: 048
     Dates: end: 20091111

REACTIONS (3)
  - MALIGNANT NEOPLASM PROGRESSION [None]
  - PLATELET COUNT DECREASED [None]
  - PLEURAL EFFUSION [None]
